FAERS Safety Report 21929788 (Version 1)
Quarter: 2023Q1

REPORT INFORMATION
  Report Type: Other
  Country: US (occurrence: None)
  Receive Date: 20230131
  Receipt Date: 20230131
  Transmission Date: 20230418
  Serious: Yes (Other)
  Sender: FDA-Public Use
  Company Number: US-ROCHE-3270975

PATIENT
  Age: 59 Year
  Sex: Female

DRUGS (2)
  1. OCREVUS [Suspect]
     Active Substance: OCRELIZUMAB
     Indication: Multiple sclerosis
     Dosage: 300 MG, EVERY 2 WEEKS, 600 MG, EVERY 6 MONTHS, DATE OF TREATMENT: 2022-01-14,2021-07-09,2022-07-01,2
     Route: 065
     Dates: start: 20210709, end: 20220701
  2. AVONEX [Concomitant]
     Active Substance: INTERFERON BETA-1A

REACTIONS (1)
  - Pneumonia [Recovered/Resolved]
